FAERS Safety Report 10955367 (Version 1)
Quarter: 2015Q1

REPORT INFORMATION
  Report Type: Other
  Country: JP (occurrence: JP)
  Receive Date: 20150326
  Receipt Date: 20150326
  Transmission Date: 20150721
  Serious: Yes (Hospitalization)
  Sender: FDA-Public Use
  Company Number: JP-TAKEDA-TCI2013A01516

PATIENT
  Age: 75 Year
  Sex: Female
  Weight: 39 kg

DRUGS (9)
  1. TRERIEF [Suspect]
     Active Substance: ZONISAMIDE
     Indication: PARKINSON^S DISEASE
     Dosage: 25 MG, QD
     Route: 048
     Dates: start: 20120822, end: 20130308
  2. PANTOSIN [Concomitant]
     Active Substance: PANTETHINE
     Dosage: UNK
     Route: 048
  3. DOPS [Suspect]
     Active Substance: DROXIDOPA
     Indication: PARKINSON^S DISEASE
     Dosage: 200 MG, TID
     Route: 048
     Dates: start: 20120606, end: 20130308
  4. GASMOTIN [Concomitant]
     Active Substance: MOSAPRIDE CITRATE
     Dosage: UNK
     Route: 048
  5. MENESIT [Concomitant]
     Active Substance: CARBIDOPA\LEVODOPA
     Dosage: UNK
     Route: 048
     Dates: start: 20130306
  6. DEPAS [Concomitant]
     Active Substance: ETIZOLAM
     Dosage: UNK
     Route: 048
  7. MAGMITT [Concomitant]
     Active Substance: MAGNESIUM OXIDE
     Dosage: UNK
     Route: 048
  8. TAKEPRON OD TABLETS 15 [Suspect]
     Active Substance: LANSOPRAZOLE
     Indication: GASTROOESOPHAGEAL REFLUX DISEASE
     Dosage: 15 MG, QD
     Route: 048
     Dates: start: 20120606, end: 20130308
  9. REQUIP [Concomitant]
     Active Substance: ROPINIROLE HYDROCHLORIDE
     Dosage: UNK
     Route: 048

REACTIONS (6)
  - Asthenia [Unknown]
  - Depressed level of consciousness [Unknown]
  - Pyrexia [Unknown]
  - Hypophagia [Unknown]
  - Platelet count decreased [Recovered/Resolved]
  - Parkinsonism [None]

NARRATIVE: CASE EVENT DATE: 20130227
